FAERS Safety Report 10672009 (Version 1)
Quarter: 2014Q4

REPORT INFORMATION
  Report Type: Spontaneous
  Country: US (occurrence: US)
  Receive Date: 20141223
  Receipt Date: 20141223
  Transmission Date: 20150529
  Serious: Yes (Other)
  Sender: FDA-Public Use
  Company Number: US-PFIZER INC-2014352416

PATIENT
  Sex: Male

DRUGS (1)
  1. CHANTIX [Suspect]
     Active Substance: VARENICLINE TARTRATE
     Dosage: UNK
     Dates: start: 201410, end: 201412

REACTIONS (7)
  - Homicidal ideation [Not Recovered/Not Resolved]
  - Crying [Unknown]
  - Aggression [Not Recovered/Not Resolved]
  - Agitation [Unknown]
  - Insomnia [Unknown]
  - Abnormal behaviour [Unknown]
  - Mania [Unknown]

NARRATIVE: CASE EVENT DATE: 20141213
